FAERS Safety Report 5447397-1 (Version None)
Quarter: 2007Q3

REPORT INFORMATION
  Report Type: 
  Country: None (occurrence: None)
  Receive Date: 20070905
  Receipt Date: 20070905
  Transmission Date: 20080115
  Serious: Yes (Other)
  Sender: FDA-Public Use
  Company Number: None

PATIENT
  Age: 19 Year
  Sex: Female
  Weight: 56.6996 kg

DRUGS (1)
  1. CREST PRO HEALTH    CREST/ PROCTOR AND GAMBLE [Suspect]
     Dosage: PEA-SIZED DROP  TWICE A DAY  DENTAL
     Route: 004
     Dates: start: 20070810, end: 20070820

REACTIONS (1)
  - GINGIVAL BLEEDING [None]
